FAERS Safety Report 26025087 (Version 1)
Quarter: 2025Q4

REPORT INFORMATION
  Report Type: Spontaneous
  Country: AU (occurrence: AU)
  Receive Date: 20251111
  Receipt Date: 20251111
  Transmission Date: 20260117
  Serious: Yes (Other)
  Sender: SAMSUNG BIOEPIS
  Company Number: AU-SAMSUNG BIOEPIS-SB-2025-37285

PATIENT
  Age: 32 Year
  Sex: Female

DRUGS (3)
  1. INFLIXIMAB [Suspect]
     Active Substance: INFLIXIMAB
     Indication: Inflammatory bowel disease
  2. INFLIXIMAB [Suspect]
     Active Substance: INFLIXIMAB
     Dosage: DOSE ESCALATED TO 10 MG/ KG ON DAYS 0, 3, AND 7;
  3. METHYLPREDNISOLONE [Suspect]
     Active Substance: METHYLPREDNISOLONE
     Indication: Inflammatory bowel disease
     Route: 042

REACTIONS (9)
  - Placental chorioangioma [Unknown]
  - Constipation [Unknown]
  - Condition aggravated [Unknown]
  - Inflammation [Unknown]
  - Pseudopolyp [Unknown]
  - Intestinal mass [Unknown]
  - Postoperative wound infection [Unknown]
  - Therapy partial responder [Unknown]
  - Maternal exposure during pregnancy [Unknown]
